FAERS Safety Report 21639508 (Version 16)
Quarter: 2025Q1

REPORT INFORMATION
  Report Type: Report from Study
  Country: US (occurrence: US)
  Receive Date: 20221124
  Receipt Date: 20250123
  Transmission Date: 20250408
  Serious: Yes (Death, Life-Threatening, Hospitalization, Other)
  Sender: TAKEDA
  Company Number: US-TAKEDA-2022TUS043566

PATIENT
  Sex: Male
  Weight: 8 kg

DRUGS (19)
  1. VELAGLUCERASE ALFA [Suspect]
     Active Substance: VELAGLUCERASE ALFA
     Indication: Gaucher^s disease
     Dosage: 400 INTERNATIONAL UNIT, Q2WEEKS
     Dates: start: 20220614
  2. VELAGLUCERASE ALFA [Suspect]
     Active Substance: VELAGLUCERASE ALFA
     Dosage: 800 INTERNATIONAL UNIT, Q2WEEKS
  3. VELAGLUCERASE ALFA [Suspect]
     Active Substance: VELAGLUCERASE ALFA
  4. SODIUM CHLORIDE [Concomitant]
     Active Substance: SODIUM CHLORIDE
  5. STERILE WATER [Concomitant]
     Active Substance: WATER
  6. SIROLIMUS [Concomitant]
     Active Substance: SIROLIMUS
  7. SODIUM CHLORIDE [Concomitant]
     Active Substance: SODIUM CHLORIDE
  8. EPINEPHRINE [Concomitant]
     Active Substance: EPINEPHRINE
  9. HEPARIN [Concomitant]
     Active Substance: HEPARIN SODIUM
  10. Lmx [Concomitant]
  11. BACLOFEN [Concomitant]
     Active Substance: BACLOFEN
  12. NEXIUM [Concomitant]
     Active Substance: ESOMEPRAZOLE MAGNESIUM
  13. DIPHENHYDRAMINE [Concomitant]
     Active Substance: DIPHENHYDRAMINE
  14. AZITHROMYCIN [Concomitant]
     Active Substance: AZITHROMYCIN
  15. TRIAMCINOLONE ACETONIDE [Concomitant]
     Active Substance: TRIAMCINOLONE ACETONIDE
  16. PREDNISOLONE [Concomitant]
     Active Substance: PREDNISOLONE
  17. FAMOTIDINE [Concomitant]
     Active Substance: FAMOTIDINE
  18. AMBROXOL [Concomitant]
     Active Substance: AMBROXOL
  19. DOXYCYCLINE HYCLATE [Concomitant]
     Active Substance: DOXYCYCLINE HYCLATE

REACTIONS (13)
  - Death [Fatal]
  - Pneumonia aspiration [Unknown]
  - Viral infection [Unknown]
  - Pneumonia [Unknown]
  - Rhinovirus infection [Unknown]
  - Respiratory syncytial virus infection [Unknown]
  - Depressed mood [Unknown]
  - Cough [Unknown]
  - Complication associated with device [Unknown]
  - Respiratory disorder [Unknown]
  - Device breakage [Unknown]
  - Breath holding [Unknown]
  - Vomiting [Unknown]
